FAERS Safety Report 21480221 (Version 1)
Quarter: 2022Q4

REPORT INFORMATION
  Report Type: Spontaneous
  Country: US (occurrence: US)
  Receive Date: 20221019
  Receipt Date: 20221019
  Transmission Date: 20230113
  Serious: Yes (Life-Threatening, Other)
  Sender: FDA-Public Use
  Company Number: US-FreseniusKabi-FK202214114

PATIENT
  Age: 76 Year
  Sex: Female

DRUGS (1)
  1. AMIODARONE [Suspect]
     Active Substance: AMIODARONE
     Indication: Atrial fibrillation
     Dosage: LOADING DOSE FOLLOWED BY MAINTENANCE DOSE
     Route: 065

REACTIONS (2)
  - Acute respiratory failure [Recovered/Resolved]
  - Pulmonary alveolar haemorrhage [Recovered/Resolved]
